FAERS Safety Report 11794954 (Version 2)
Quarter: 2016Q1

REPORT INFORMATION
  Report Type: Spontaneous
  Country: DE (occurrence: DE)
  Receive Date: 20151202
  Receipt Date: 20160105
  Transmission Date: 20160525
  Serious: Yes (Hospitalization, Other)
  Sender: FDA-Public Use
  Company Number: DE-INCYTE CORPORATION-2015IN006162

PATIENT
  Sex: Male
  Weight: 75 kg

DRUGS (4)
  1. ALLOPURINOL. [Concomitant]
     Active Substance: ALLOPURINOL
     Indication: MUCOPOLYSACCHARIDOSIS
     Dosage: 100 MG, UNK
     Route: 048
  2. ASPIRIN. [Concomitant]
     Active Substance: ASPIRIN
     Indication: MUCOPOLYSACCHARIDOSIS
     Dosage: 100 MG, UNK
     Route: 048
     Dates: end: 201410
  3. JAKAFI [Suspect]
     Active Substance: RUXOLITINIB
     Indication: MYELOFIBROSIS
     Dosage: 20 MG (02 DF)
     Route: 065
     Dates: start: 20140806, end: 20151115
  4. OMEPRAZOLE. [Concomitant]
     Active Substance: OMEPRAZOLE
     Indication: OESOPHAGITIS
     Dosage: 40 MG, UNK
     Route: 048
     Dates: start: 201406

REACTIONS (2)
  - Second primary malignancy [Unknown]
  - Oesophageal squamous cell carcinoma stage 0 [Unknown]

NARRATIVE: CASE EVENT DATE: 20151104
